FAERS Safety Report 8648744 (Version 2)
Quarter: 2012Q4

REPORT INFORMATION
  Report Type: 
  Country: RO (occurrence: RO)
  Receive Date: 20120703
  Receipt Date: 20120829
  Transmission Date: 20130627
  Serious: Yes (Other)
  Sender: FDA-Public Use
  Company Number: RO-ELI_LILLY_AND_COMPANY-RO201206008577

PATIENT
  Age: 16 Year
  Sex: Male
  Weight: 60 kg

DRUGS (6)
  1. STRATTERA [Suspect]
     Indication: ATTENTION DEFICIT/HYPERACTIVITY DISORDER
     Dosage: 40 mg, qd
     Route: 065
     Dates: start: 200611, end: 20120618
  2. MILGAMMA N [Concomitant]
     Dosage: UNK, qd
  3. ENCEPHABOL [Concomitant]
     Dosage: 200 mg, qd
  4. TANAKAN [Concomitant]
     Dosage: 2 ml, qd
  5. NEUROMULTIVIT [Concomitant]
     Dosage: UNK, qd
  6. MAGNESIUM [Concomitant]

REACTIONS (2)
  - Cholelithiasis [Not Recovered/Not Resolved]
  - Alanine aminotransferase increased [Not Recovered/Not Resolved]
